FAERS Safety Report 21852522 (Version 2)
Quarter: 2023Q1

REPORT INFORMATION
  Report Type: Spontaneous
  Country: JO (occurrence: JO)
  Receive Date: 20230112
  Receipt Date: 20230123
  Transmission Date: 20230417
  Serious: No
  Sender: FDA-Public Use
  Company Number: JO-SA-SAC20221222001071

PATIENT
  Sex: Female

DRUGS (3)
  1. TOUJEO [Suspect]
     Active Substance: INSULIN GLARGINE
     Indication: Diabetes mellitus
     Dosage: UNK
     Route: 058
  2. APIDRA [Suspect]
     Active Substance: INSULIN GLULISINE
     Dosage: UNK
  3. VILDAGLIPTIN [Suspect]
     Active Substance: VILDAGLIPTIN
     Dosage: UNK

REACTIONS (3)
  - Rash [Recovering/Resolving]
  - Yellow skin [Recovered/Resolved]
  - Pruritus [Recovered/Resolved]
